FAERS Safety Report 16786970 (Version 1)
Quarter: 2019Q3

REPORT INFORMATION
  Report Type: Spontaneous
  Country: US (occurrence: US)
  Receive Date: 20190909
  Receipt Date: 20190909
  Transmission Date: 20191005
  Serious: No
  Sender: FDA-Public Use
  Company Number: US-SA-2019SA243493

PATIENT
  Sex: Female

DRUGS (6)
  1. PLAQUENIL [Suspect]
     Active Substance: HYDROXYCHLOROQUINE SULFATE
  2. METHOTREXATE. [Suspect]
     Active Substance: METHOTREXATE
  3. SULFASALAZINE. [Suspect]
     Active Substance: SULFASALAZINE
  4. ORENCIA [Suspect]
     Active Substance: ABATACEPT
  5. IMURAN [Suspect]
     Active Substance: AZATHIOPRINE
  6. ARAVA [Suspect]
     Active Substance: LEFLUNOMIDE

REACTIONS (7)
  - Erythema [Unknown]
  - Pruritus [Unknown]
  - Nausea [Unknown]
  - Drug intolerance [Unknown]
  - Swelling [Unknown]
  - Skin papilloma [Unknown]
  - Nightmare [Unknown]
